FAERS Safety Report 4794535-X (Version None)
Quarter: 2005Q4

REPORT INFORMATION
  Report Type: 
  Country: None (occurrence: None)
  Receive Date: 20051011
  Receipt Date: 20050930
  Transmission Date: 20060501
  Serious: Yes (Other)
  Sender: FDA-Public Use
  Company Number: PHRM2005FR02602

PATIENT
  Age: 58 Year
  Sex: Male
  Weight: 73 kg

DRUGS (7)
  1. ZOMETA [Suspect]
     Indication: METASTASES TO BONE
     Dosage: 4 MG QMO OR EVERY 6 WEEKS
     Route: 042
     Dates: start: 20030701, end: 20050601
  2. AREDIA [Suspect]
     Indication: METASTASES TO BONE
     Dosage: 90 MG QMO OR EVERY 6 WEEKS
     Route: 042
     Dates: start: 20030701, end: 20050601
  3. ROFERON [Concomitant]
     Dosage: 9 MU 3 D/WEEK
     Dates: start: 20031101, end: 20040401
  4. GEMCITABINE [Concomitant]
     Dosage: 1100A?G DAY1, 8, 15
     Dates: start: 20050708
  5. FLUOROURACIL [Concomitant]
     Dosage: 1900 A?G AT DAY 1, 8, 15
     Dates: start: 20050708
  6. ANTIBIOTICS [Concomitant]
     Route: 048
     Dates: start: 20050629
  7. ANAESTHETICS, LOCAL [Concomitant]
     Indication: TOOTH EXTRACTION
     Dates: start: 20050629, end: 20050629

REACTIONS (4)
  - BONE DENSITY DECREASED [None]
  - GINGIVAL INJURY [None]
  - TOOTH EXTRACTION [None]
  - WOUND DEHISCENCE [None]
